FAERS Safety Report 10064495 (Version 3)
Quarter: 2014Q3

REPORT INFORMATION
  Report Type: Spontaneous
  Country: US (occurrence: US)
  Receive Date: 20140408
  Receipt Date: 20140702
  Transmission Date: 20150326
  Serious: Yes (Other)
  Sender: FDA-Public Use
  Company Number: US-BAYER-2014-050304

PATIENT
  Age: 33 Year
  Sex: Female

DRUGS (1)
  1. MIRENA [Suspect]
     Active Substance: LEVONORGESTREL
     Indication: CONTRACEPTION
     Dosage: 20 MCG/24HR, CONT
     Route: 015
     Dates: start: 20131202, end: 20140217

REACTIONS (7)
  - Infection [Recovered/Resolved]
  - Genital haemorrhage [None]
  - Abdominal pain [Recovered/Resolved]
  - Dyspareunia [Not Recovered/Not Resolved]
  - Abdominal distension [Recovered/Resolved]
  - Pelvic pain [Not Recovered/Not Resolved]
  - Menorrhagia [None]

NARRATIVE: CASE EVENT DATE: 2014
